FAERS Safety Report 5114207-1 (Version None)
Quarter: 2006Q3

REPORT INFORMATION
  Report Type: 
  Country: None (occurrence: None)
  Receive Date: 20060802
  Receipt Date: 20060606
  Transmission Date: 20061208
  Serious: No
  Sender: FDA-Public Use
  Company Number: 200615212US

PATIENT
  Age: 31 Year
  Sex: Male

DRUGS (2)
  1. KETEK [Suspect]
     Indication: PHARYNGOLARYNGEAL PAIN
     Dosage: 400 MG QD PO
     Route: 048
     Dates: start: 20050928, end: 20061002
  2. KETEK [Suspect]
     Indication: UPPER RESPIRATORY TRACT INFECTION
     Dosage: 400 MG QD PO
     Route: 048
     Dates: start: 20050928, end: 20061002

REACTIONS (1)
  - DRUG INEFFECTIVE [None]
